FAERS Safety Report 17511650 (Version 1)
Quarter: 2020Q1

REPORT INFORMATION
  Report Type: Spontaneous
  Country: CZ (occurrence: CZ)
  Receive Date: 20200308
  Receipt Date: 20200308
  Transmission Date: 20200409
  Serious: Yes (Other)
  Sender: FDA-Public Use
  Company Number: NVSC2020CZ060557

PATIENT
  Age: 30 Year
  Sex: Female

DRUGS (1)
  1. INTERFERON BETA-1B [Suspect]
     Active Substance: INTERFERON BETA-1B
     Indication: MULTIPLE SCLEROSIS
     Route: 065

REACTIONS (6)
  - Multiple sclerosis [Unknown]
  - Hyperplasia [Unknown]
  - Rash [Not Recovered/Not Resolved]
  - Discomfort [Unknown]
  - Psoriasis [Not Recovered/Not Resolved]
  - Diarrhoea [Unknown]
